FAERS Safety Report 4834314-8 (Version None)
Quarter: 2005Q4

REPORT INFORMATION
  Report Type: 
  Country: None (occurrence: None)
  Receive Date: 20051122
  Receipt Date: 20050819
  Transmission Date: 20060501
  Serious: Yes (Hospitalization)
  Sender: FDA-Public Use
  Company Number: FI-ROCHE-415172

PATIENT
  Age: 70 Year
  Sex: Male

DRUGS (12)
  1. XELODA [Suspect]
     Indication: COLON CANCER
     Dosage: DOSING REGIME REPORTED AS ^2X2 / 2 WEEKS + 1 WEEK PAUSE^
     Route: 048
     Dates: start: 20050704, end: 20050808
  2. LISINOPRIL AND HYDROCHLOROTHIAZIDE [Concomitant]
     Dosage: DOSING REGIME REPORTED AS ^1X1^ TRADE NAME REPORTED AS LISPRIL COMP.
     Route: 048
  3. SELECTOL [Concomitant]
     Dosage: DOSING REGIME REPORTED AS ^1X1^
     Route: 048
  4. ORIGLUCON [Concomitant]
     Dosage: DOSING REGIME REPORTED AS ^1X3^
     Route: 048
  5. SYSCOR [Concomitant]
     Dosage: DOSING REGIME REPORTED AS ^1X1^
     Route: 048
  6. TRAMADOL HCL [Concomitant]
     Dosage: REPORTED ^50 MG AND 100 MG^
     Route: 048
  7. PROSCAR [Concomitant]
     Dosage: DOSING REGIME ^1X1^
  8. CANEF [Concomitant]
     Dosage: DOSING REGIME REPORTED AS ^1X1^
  9. SOMAC [Concomitant]
     Dosage: DOSING REGIME REPORTED AS ^1X1^
  10. RHINOCORT [Concomitant]
     Dosage: FREQUENCY REPORTED AS ^X2^
  11. BECLOMET [Concomitant]
     Dosage: FREQUENCY REPORTED AS ^1X2^
  12. SALBUTAMOL [Concomitant]
     Dosage: FREQUENCY REPORTED AS ^1X2^. TRADE NAME REPORTED AS 'BUVENTOL'

REACTIONS (1)
  - PEMPHIGOID [None]
